FAERS Safety Report 17417692 (Version 1)
Quarter: 2020Q1

REPORT INFORMATION
  Report Type: Other
  Country: IT (occurrence: IT)
  Receive Date: 20200214
  Receipt Date: 20200214
  Transmission Date: 20200409
  Serious: Yes (Other)
  Sender: FDA-Public Use
  Company Number: IT-CELLTRION INC.-2020IT018892

PATIENT

DRUGS (3)
  1. CYCLOSPORINE. [Concomitant]
     Active Substance: CYCLOSPORINE
     Indication: GLOMERULONEPHRITIS
     Dosage: UP TP 400 MG
     Route: 065
  2. RITUXIMAB (UNKNOWN) [Suspect]
     Active Substance: RITUXIMAB
     Indication: GLOMERULONEPHRITIS
     Dosage: 4 INFUSIONS, UNK
     Route: 065
  3. CORTISONE [Concomitant]
     Active Substance: CORTISONE
     Indication: GLOMERULONEPHRITIS
     Dosage: 25 MG
     Route: 065

REACTIONS (4)
  - Off label use [Unknown]
  - Product use in unapproved indication [Unknown]
  - Proteinuria [Unknown]
  - Drug ineffective [Unknown]
